FAERS Safety Report 9408195 (Version 2)
Quarter: 2013Q3

REPORT INFORMATION
  Report Type: Spontaneous
  Country: US (occurrence: US)
  Receive Date: 20130718
  Receipt Date: 20130925
  Transmission Date: 20140515
  Serious: No
  Sender: FDA-Public Use
  Company Number: US-TEVA-419798USA

PATIENT
  Age: 20 Year
  Sex: Female
  Weight: 99.88 kg

DRUGS (4)
  1. PARAGARD 380A [Suspect]
     Indication: CONTRACEPTION
     Route: 015
     Dates: start: 20130618, end: 20130716
  2. EFFEXOR [Concomitant]
     Indication: ANXIETY
  3. ADVIL [Concomitant]
  4. IBUPROFEN [Concomitant]

REACTIONS (2)
  - Pelvic pain [Recovered/Resolved]
  - Device expulsion [Recovered/Resolved]
